FAERS Safety Report 9298512 (Version 2)
Quarter: 2013Q2

REPORT INFORMATION
  Report Type: Report from Study
  Country: ES (occurrence: ES)
  Receive Date: 20130520
  Receipt Date: 20130621
  Transmission Date: 20140414
  Serious: Yes (Death, Other)
  Sender: FDA-Public Use
  Company Number: ES-ROCHE-1224434

PATIENT
  Age: 50 Year
  Sex: Male

DRUGS (4)
  1. MYCOPHENOLATE MOFETIL [Suspect]
     Indication: LIVER TRANSPLANT
     Route: 065
  2. EVEROLIMUS [Suspect]
     Indication: LIVER TRANSPLANT
     Route: 065
  3. TACROLIMUS [Suspect]
     Indication: LIVER TRANSPLANT
     Dosage: 6-9 NG/DL
     Route: 065
  4. RIBAVIRIN [Concomitant]

REACTIONS (4)
  - Hepatic failure [Unknown]
  - Transplant rejection [Unknown]
  - Hepatic failure [Fatal]
  - Transplant rejection [Fatal]
